FAERS Safety Report 18532211 (Version 1)
Quarter: 2020Q4

REPORT INFORMATION
  Report Type: Spontaneous
  Country: US (occurrence: US)
  Receive Date: 20201123
  Receipt Date: 20201123
  Transmission Date: 20210114
  Serious: No
  Sender: FDA-Public Use
  Company Number: US-CIPLA LTD.-2020US05979

PATIENT

DRUGS (3)
  1. PROPRANOLOL [Concomitant]
     Active Substance: PROPRANOLOL HYDROCHLORIDE
     Indication: PRODUCT USED FOR UNKNOWN INDICATION
     Dosage: 80 MILLIGRAM, BID
     Route: 065
     Dates: start: 20181226
  2. CETIRIZINE [Concomitant]
     Active Substance: CETIRIZINE HYDROCHLORIDE
     Indication: HYPERSENSITIVITY
     Dosage: 10 MILLIGRAM, QD
     Route: 065
     Dates: start: 2019
  3. GABAPENTIN. [Suspect]
     Active Substance: GABAPENTIN
     Indication: TRIGEMINAL NEURALGIA
     Dosage: 100 MILLIGRAM, TWO CAPSULES TWICE A DAY AND FOUR TABLETS IN THE EVENING
     Route: 048
     Dates: start: 20200628

REACTIONS (3)
  - Drug ineffective for unapproved indication [Unknown]
  - Off label use [Unknown]
  - Product quality issue [Unknown]
